FAERS Safety Report 16624195 (Version 2)
Quarter: 2019Q3

REPORT INFORMATION
  Report Type: Report from Study
  Country: US (occurrence: US)
  Receive Date: 20190724
  Receipt Date: 20190730
  Transmission Date: 20191004
  Serious: Yes (Other)
  Sender: FDA-Public Use
  Company Number: US-ROCHE-2360831

PATIENT
  Sex: Female

DRUGS (2)
  1. CELLCEPT [Suspect]
     Active Substance: MYCOPHENOLATE MOFETIL\MYCOPHENOLATE MOFETIL HYDROCHLORIDE
     Indication: OFF LABEL USE
  2. CELLCEPT [Suspect]
     Active Substance: MYCOPHENOLATE MOFETIL\MYCOPHENOLATE MOFETIL HYDROCHLORIDE
     Indication: PULMONARY SARCOIDOSIS
     Dosage: 2 TABLETS
     Route: 065

REACTIONS (4)
  - Blindness unilateral [Unknown]
  - Sarcoidosis [Unknown]
  - Off label use [Unknown]
  - Intentional product use issue [Unknown]
